FAERS Safety Report 9380389 (Version 1)
Quarter: 2013Q3

REPORT INFORMATION
  Report Type: Spontaneous
  Country: US (occurrence: US)
  Receive Date: 20130702
  Receipt Date: 20130702
  Transmission Date: 20140515
  Serious: Yes (Hospitalization)
  Sender: FDA-Public Use
  Company Number: US-TEVA-416083USA

PATIENT
  Age: 75 Year
  Sex: Male

DRUGS (1)
  1. SYNRIBO [Suspect]
     Indication: CHRONIC MYELOID LEUKAEMIA
     Dates: start: 2013

REACTIONS (1)
  - Renal failure acute [Unknown]
